FAERS Safety Report 8807564 (Version 1)
Quarter: 2012Q4

REPORT INFORMATION
  Report Type: 
  Country: US (occurrence: US)
  Receive Date: 20120925
  Receipt Date: 20120925
  Transmission Date: 20130627
  Serious: No
  Sender: FDA-Public Use
  Company Number: US-FOUGERA-2012FO001301

PATIENT
  Age: 60 Year
  Sex: Female
  Weight: 63.5 kg

DRUGS (1)
  1. LIDOCAINE + PRILOCAINE [Suspect]
     Indication: ANAESTHETIC PREMEDICATION
     Dates: start: 20120815, end: 20120815

REACTIONS (4)
  - Nausea [Recovering/Resolving]
  - Dizziness [Recovering/Resolving]
  - Dizziness [None]
  - Feeling abnormal [None]
